FAERS Safety Report 9358426 (Version 3)
Quarter: 2013Q4

REPORT INFORMATION
  Report Type: Report from Study
  Country: US (occurrence: US)
  Receive Date: 20130620
  Receipt Date: 20131002
  Transmission Date: 20140711
  Serious: Yes (Death, Hospitalization)
  Sender: FDA-Public Use
  Company Number: US-ACTELION-A-NJ2013-83762

PATIENT
  Age: 59 Year
  Sex: Male

DRUGS (12)
  1. VELETRI [Suspect]
     Indication: PULMONARY HYPERTENSION
     Dosage: 2 NG/KG, PER MIN
     Route: 042
     Dates: start: 20130501
  2. SILDENAFIL [Concomitant]
     Dosage: 20 MG, TID
  3. COUMADIN [Concomitant]
     Dosage: 5 MG, QD
  4. POTASSIUM CHLORIDE [Concomitant]
     Dosage: 20 MEQ, BID
  5. SPIRONOLACTONE [Concomitant]
     Dosage: 25 MG, QD
  6. FUROSEMIDE [Concomitant]
     Dosage: 60 MG, BID
  7. CARVEDILOL [Concomitant]
     Dosage: 3.125 MG, BID
  8. FLONASE [Concomitant]
     Dosage: 50 MCG, UNK
  9. CLARITIN [Concomitant]
     Dosage: 10 MG, QD
  10. PREDNISONE [Concomitant]
     Dosage: 5 MG, QD
  11. AMIODARONE [Concomitant]
     Dosage: 200 MG, QD
  12. ACETAMINOPHEN [Concomitant]
     Dosage: 1000 MG, UNK

REACTIONS (5)
  - Death [Fatal]
  - Ventricular assist device insertion [Unknown]
  - Cardiac failure congestive [Unknown]
  - Fluid retention [Recovering/Resolving]
  - Pulmonary hypertension [Unknown]
